FAERS Safety Report 5637282-4 (Version None)
Quarter: 2008Q1

REPORT INFORMATION
  Report Type: 
  Country: None (occurrence: None)
  Receive Date: 20080225
  Receipt Date: 20080213
  Transmission Date: 20080703
  Serious: Yes (Other)
  Sender: FDA-Public Use
  Company Number: US-WYE-H02587408

PATIENT
  Age: 34 Year
  Sex: Female

DRUGS (2)
  1. EFFEXOR XR [Suspect]
     Indication: DEPRESSION
     Dosage: 112.5 MG, FREQUENCY UNKNOWN
     Dates: start: 20070101
  2. LITHIUM CARBONATE [Interacting]
     Indication: BIPOLAR DISORDER
     Dosage: ^LOWEST DOSAGE^
     Dates: start: 20071011, end: 20080101

REACTIONS (6)
  - CONDITION AGGRAVATED [None]
  - DEPRESSION [None]
  - DRUG INTERACTION [None]
  - PARADOXICAL DRUG REACTION [None]
  - SUICIDAL BEHAVIOUR [None]
  - SUICIDAL IDEATION [None]
